FAERS Safety Report 24829585 (Version 4)
Quarter: 2025Q3

REPORT INFORMATION
  Report Type: Report from Study
  Country: US (occurrence: US)
  Receive Date: 20250110
  Receipt Date: 20250825
  Transmission Date: 20251021
  Serious: Yes (Hospitalization)
  Sender: JAZZ
  Company Number: US-JAZZ PHARMACEUTICALS-2025-US-000344

PATIENT
  Sex: Female

DRUGS (25)
  1. XYWAV [Suspect]
     Active Substance: CALCIUM OXYBATE\MAGNESIUM OXYBATE\POTASSIUM OXYBATE\SODIUM OXYBATE
     Indication: Hypersomnia
     Dosage: 3.75 GRAM, BID
  2. XYWAV [Suspect]
     Active Substance: CALCIUM OXYBATE\MAGNESIUM OXYBATE\POTASSIUM OXYBATE\SODIUM OXYBATE
     Dosage: 7.5 MILLILITER, QD
  3. GABAPENTIN [Suspect]
     Active Substance: GABAPENTIN
     Indication: Product used for unknown indication
  4. LAMOTRIGINE [Concomitant]
     Active Substance: LAMOTRIGINE
     Indication: Product used for unknown indication
  5. MONOJEL [Concomitant]
     Indication: Product used for unknown indication
  6. ZEPBOUND [Concomitant]
     Active Substance: TIRZEPATIDE
     Indication: Product used for unknown indication
  7. EVEKEO [Concomitant]
     Active Substance: AMPHETAMINE SULFATE
     Indication: Product used for unknown indication
  8. CODEINE PHOSPHATE\PROMETHAZINE HYDROCHLORIDE [Concomitant]
     Active Substance: CODEINE PHOSPHATE\PROMETHAZINE HYDROCHLORIDE
     Indication: Product used for unknown indication
  9. TESSALON [Concomitant]
     Active Substance: BENZONATATE
     Indication: Product used for unknown indication
  10. ALBUTEROL SULFATE [Concomitant]
     Active Substance: ALBUTEROL SULFATE
     Indication: Product used for unknown indication
  11. ROBITUSSIN AC [CODEINE PHOSPHATE;GUAIFENESIN] [Concomitant]
     Indication: Product used for unknown indication
  12. ZOFRAN [Concomitant]
     Active Substance: ONDANSETRON HYDROCHLORIDE
     Indication: Product used for unknown indication
  13. XANAX [Concomitant]
     Active Substance: ALPRAZOLAM
     Indication: Product used for unknown indication
  14. CELEBREX [Concomitant]
     Active Substance: CELECOXIB
     Indication: Product used for unknown indication
  15. TOPAMAX [Concomitant]
     Active Substance: TOPIRAMATE
     Indication: Product used for unknown indication
  16. EMGALITY [Concomitant]
     Active Substance: GALCANEZUMAB-GNLM
     Indication: Product used for unknown indication
  17. UBRELVY [Concomitant]
     Active Substance: UBROGEPANT
     Indication: Product used for unknown indication
  18. CYMBALTA [Concomitant]
     Active Substance: DULOXETINE HYDROCHLORIDE
     Indication: Product used for unknown indication
  19. OMEPRAZOLE [Concomitant]
     Active Substance: OMEPRAZOLE
     Indication: Product used for unknown indication
  20. CARAFATE [Concomitant]
     Active Substance: SUCRALFATE
     Indication: Product used for unknown indication
  21. NASONEX [Concomitant]
     Active Substance: MOMETASONE FUROATE
     Indication: Product used for unknown indication
  22. MYCOSTATIN [Concomitant]
     Active Substance: NYSTATIN
     Indication: Product used for unknown indication
  23. LAMICTAL [Concomitant]
     Active Substance: LAMOTRIGINE
     Indication: Product used for unknown indication
  24. VRAYLAR [Concomitant]
     Active Substance: CARIPRAZINE
     Indication: Product used for unknown indication
  25. ZYRTEC [Concomitant]
     Active Substance: CETIRIZINE HYDROCHLORIDE
     Indication: Product used for unknown indication

REACTIONS (8)
  - Self-injurious ideation [Unknown]
  - Illness [Recovering/Resolving]
  - Fatigue [Recovering/Resolving]
  - Somnolence [Unknown]
  - Pain [Unknown]
  - Obesity [Unknown]
  - Product administration interrupted [Unknown]
  - Product dose omission issue [Unknown]
